FAERS Safety Report 8082180-2 (Version None)
Quarter: 2012Q1

REPORT INFORMATION
  Report Type: 
  Country: None (occurrence: None)
  Receive Date: 20120127
  Receipt Date: 20110207
  Transmission Date: 20120608
  Serious: No
  Sender: FDA-Public Use
  Company Number: US-ABBOTT-11P-163-0699941-00

PATIENT
  Age: 24 Year
  Sex: Female

DRUGS (7)
  1. PREDNISONE TAB [Concomitant]
     Indication: COLITIS ULCERATIVE
     Dosage: DAILY
  2. HUMIRA [Suspect]
     Indication: COLITIS ULCERATIVE
     Dates: start: 20101124
  3. ZOLOFT [Concomitant]
     Indication: DEPRESSION
     Dosage: DAILY
  4. ALLEGRA [Concomitant]
     Indication: HYPERSENSITIVITY
     Dosage: DAILY
  5. OGESTREL 0.5/50-21 [Concomitant]
     Indication: CONTRACEPTION
     Dosage: 28 TABS/DAILY
  6. LIALDA [Concomitant]
     Indication: COLITIS ULCERATIVE
  7. ALBUTEROL [Concomitant]
     Indication: ASTHMA
     Dosage: PRN

REACTIONS (3)
  - PARAESTHESIA [None]
  - HYPOAESTHESIA [None]
  - ARTHRALGIA [None]
